FAERS Safety Report 20907562 (Version 1)
Quarter: 2022Q2

REPORT INFORMATION
  Report Type: Report from Study
  Country: CA (occurrence: CA)
  Receive Date: 20220602
  Receipt Date: 20220602
  Transmission Date: 20220721
  Serious: Yes (Other)
  Sender: FDA-Public Use
  Company Number: CA-MYLANLABS-2022M1041626

PATIENT
  Age: 40 Year
  Sex: Female

DRUGS (1)
  1. HULIO [Suspect]
     Active Substance: ADALIMUMAB-FKJP
     Indication: Product used for unknown indication
     Dosage: UNK, BIWEEKLY

REACTIONS (6)
  - Rectal haemorrhage [Unknown]
  - Proctalgia [Unknown]
  - Anal fistula [Unknown]
  - Furuncle [Unknown]
  - Diarrhoea [Unknown]
  - Abdominal pain [Unknown]
